FAERS Safety Report 18414209 (Version 1)
Quarter: 2020Q4

REPORT INFORMATION
  Report Type: Report from Study
  Country: None (occurrence: PR)
  Receive Date: 20201022
  Receipt Date: 20201022
  Transmission Date: 20210114
  Serious: Yes (Other)
  Sender: FDA-Public Use
  Company Number: PR-ABBVIE-20K-131-3495321-00

PATIENT
  Sex: Male
  Weight: 61.74 kg

DRUGS (8)
  1. ATORVASTATIN [Concomitant]
     Active Substance: ATORVASTATIN
     Indication: BLOOD CHOLESTEROL
     Dosage: STARTED MORE THAN 5 YEARS AGO
     Route: 048
  2. HUMIRA [Suspect]
     Active Substance: ADALIMUMAB
     Indication: RHEUMATOID ARTHRITIS
     Route: 058
     Dates: start: 2020, end: 202003
  3. ASPIRIN. [Concomitant]
     Active Substance: ASPIRIN
     Indication: BLOOD DISORDER
     Route: 048
     Dates: start: 202003
  4. LEVOTHYROXINE. [Concomitant]
     Active Substance: LEVOTHYROXINE
     Indication: THYROID DISORDER
     Dosage: STARTED MORE THAN 1 YEAR AGO
     Route: 048
  5. HUMIRA [Suspect]
     Active Substance: ADALIMUMAB
     Route: 058
     Dates: start: 2020
  6. LOSARTAN. [Concomitant]
     Active Substance: LOSARTAN
     Indication: BLOOD PRESSURE ABNORMAL
     Dosage: STARTED MORE THAN 5 YEARS AGO
     Route: 048
  7. HUMIRA [Suspect]
     Active Substance: ADALIMUMAB
     Indication: RHEUMATOID ARTHRITIS
     Route: 058
     Dates: start: 2010
  8. METHOTREXATE. [Concomitant]
     Active Substance: METHOTREXATE
     Indication: BLOOD CHOLESTEROL
     Route: 048
     Dates: start: 2016

REACTIONS (4)
  - Respiratory tract congestion [Recovered/Resolved]
  - Venous occlusion [Not Recovered/Not Resolved]
  - Seasonal allergy [Recovered/Resolved]
  - Dust allergy [Recovered/Resolved]

NARRATIVE: CASE EVENT DATE: 202003
